FAERS Safety Report 24675296 (Version 1)
Quarter: 2024Q4

REPORT INFORMATION
  Report Type: Spontaneous
  Country: IN (occurrence: IN)
  Receive Date: 20241128
  Receipt Date: 20241128
  Transmission Date: 20250114
  Serious: Yes (Death)
  Sender: ROCHE
  Company Number: IN-ROCHE-3525893

PATIENT
  Age: 62 Year
  Sex: Male

DRUGS (1)
  1. TECENTRIQ [Suspect]
     Active Substance: ATEZOLIZUMAB
     Indication: Prostate cancer
     Route: 042
     Dates: start: 20240301

REACTIONS (3)
  - Off label use [Unknown]
  - Off label use [Unknown]
  - Small cell carcinoma [Fatal]

NARRATIVE: CASE EVENT DATE: 20240819
